FAERS Safety Report 6671841-5 (Version None)
Quarter: 2010Q2

REPORT INFORMATION
  Report Type: 
  Country: None (occurrence: None)
  Receive Date: 20100407
  Receipt Date: 20100401
  Transmission Date: 20101027
  Serious: Yes (Hospitalization)
  Sender: FDA-Public Use
  Company Number: PHHO2010DE03904

PATIENT
  Sex: Male
  Weight: 73.2 kg

DRUGS (3)
  1. MYFORTIC [Suspect]
     Indication: RENAL TRANSPLANT
     Dosage: 1080 MG, BID
     Route: 048
     Dates: start: 20100210
  2. SANDIMMUNE [Suspect]
     Indication: RENAL TRANSPLANT
     Dosage: 125 MG 2 X 1
     Route: 048
     Dates: start: 20100214
  3. SIMULECT [Suspect]
     Indication: RENAL TRANSPLANT
     Dosage: 20 MG
     Route: 048
     Dates: start: 20100210

REACTIONS (1)
  - PANCYTOPENIA [None]
